FAERS Safety Report 7792662-6 (Version None)
Quarter: 2011Q4

REPORT INFORMATION
  Report Type: 
  Country: None (occurrence: None)
  Receive Date: 20111003
  Receipt Date: 20110922
  Transmission Date: 20120403
  Serious: Yes (Hospitalization)
  Sender: FDA-Public Use
  Company Number: FR-ASTRAZENECA-2011SE57655

PATIENT
  Age: 84 Year
  Sex: Female

DRUGS (11)
  1. ACETAMINOPHEN AND TRAMADOL HCL [Suspect]
     Route: 048
     Dates: end: 20110816
  2. GAVISCON [Suspect]
     Route: 048
     Dates: end: 20110816
  3. ZOLPIDEM [Suspect]
     Route: 048
     Dates: start: 20110805, end: 20110816
  4. SPIRIVA [Concomitant]
  5. DEBRIDAT [Concomitant]
  6. NEXIUM [Suspect]
     Route: 048
     Dates: end: 20110816
  7. PRAZEPAM [Suspect]
     Route: 048
     Dates: end: 20110805
  8. ESCITALOPRAM OXALATE [Suspect]
     Route: 048
     Dates: start: 20110805, end: 20110816
  9. PRAZEPAM [Suspect]
     Route: 048
     Dates: start: 20110805, end: 20110816
  10. NEXIUM [Suspect]
     Route: 048
     Dates: start: 20110819
  11. BECLOMETHASONE DIPROPIONATE [Concomitant]

REACTIONS (3)
  - FALL [None]
  - DISORIENTATION [None]
  - HYPONATRAEMIA [None]
